FAERS Safety Report 5156879-1 (Version None)
Quarter: 2006Q4

REPORT INFORMATION
  Report Type: 
  Country: None (occurrence: None)
  Receive Date: 20060918
  Receipt Date: 20060530
  Transmission Date: 20070319
  Serious: Yes (Other)
  Sender: FDA-Public Use
  Company Number: US-JNJFOC-20060602943

PATIENT

DRUGS (1)
  1. TOPAMAX [Suspect]
     Indication: EPILEPSY
     Dosage: 25 MG, 1 IN 1 DAY, ORAL ; 50 MG 1 IN 1 DAY ORAL ; 75 MG 1 IN 1 DAY ORAL ; 100 MG 1 IN 1 DAY ORAL
     Route: 048
     Dates: start: 20060101

REACTIONS (5)
  - CORNEAL OEDEMA [None]
  - DRY EYE [None]
  - EYE PAIN [None]
  - FLAT ANTERIOR CHAMBER OF EYE [None]
  - INTRAOCULAR PRESSURE INCREASED [None]
